FAERS Safety Report 18539295 (Version 1)
Quarter: 2020Q4

REPORT INFORMATION
  Report Type: Spontaneous
  Country: GB (occurrence: GB)
  Receive Date: 20201124
  Receipt Date: 20201124
  Transmission Date: 20210114
  Serious: Yes (Other)
  Sender: FDA-Public Use
  Company Number: GB-TEVA-2020-GB-1851456

PATIENT
  Age: 45 Year
  Sex: Female
  Weight: 117 kg

DRUGS (8)
  1. AMLODIPINE [Suspect]
     Active Substance: AMLODIPINE BESYLATE
     Dosage: 5MG
     Route: 065
     Dates: start: 20201009
  2. AMOXICILLIN. [Concomitant]
     Active Substance: AMOXICILLIN
     Indication: COUGH
     Dosage: CONSIDER DELAYED SCRIP...
     Dates: start: 20201027
  3. LORATADINE. [Concomitant]
     Active Substance: LORATADINE
     Dosage: 1 DOSAGE FORMS
     Dates: start: 20191017
  4. BETNOVATE [Concomitant]
     Active Substance: BETAMETHASONE
     Dosage: USE AS DIRECTED
     Dates: start: 20191017
  5. SALBUTAMOL [Concomitant]
     Active Substance: ALBUTEROL
     Dosage: INHALE 1 DOSE 3-4 TIMES/DAY
     Dates: start: 20191017
  6. RELVAR ELLIPTA [Concomitant]
     Active Substance: FLUTICASONE FUROATE\VILANTEROL TRIFENATATE
     Dosage: 1 DOSAGE FORMS DAILY; INHALE 1 DOSE DAILY, 1 DOSAGE FORMS
     Dates: start: 20200430
  7. PREDNISOLONE. [Concomitant]
     Active Substance: PREDNISOLONE
     Dosage: TAKE 8 DAILY AS A SINGLE DOSE FOR 5 DAYS, 8 DOSAGE FORMS
     Dates: start: 20201016, end: 20201021
  8. MONTELUKAST [Concomitant]
     Active Substance: MONTELUKAST SODIUM
     Dosage: 1 DOSAGE FORMS DAILY; NIGHT, 1 DOSAGE FORMS
     Dates: start: 20191017

REACTIONS (2)
  - Palpitations [Recovered/Resolved]
  - Vision blurred [Recovered/Resolved]

NARRATIVE: CASE EVENT DATE: 20201027
